FAERS Safety Report 12286717 (Version 4)
Quarter: 2018Q1

REPORT INFORMATION
  Report Type: Report from Study
  Country: GB (occurrence: GB)
  Receive Date: 20160420
  Receipt Date: 20180303
  Transmission Date: 20180508
  Serious: Yes (Other)
  Sender: FDA-Public Use
  Company Number: GB-ROCHE-1745069

PATIENT
  Age: 62 Year
  Sex: Male

DRUGS (6)
  1. IDELALISIB [Suspect]
     Active Substance: IDELALISIB
     Dosage: THIS 100 MG DOSE WAS GIVEN IN SECOND CYCLE DUE TO ADVERSE EVENT
     Route: 048
  2. IDELALISIB [Suspect]
     Active Substance: IDELALISIB
     Route: 048
  3. RITUXIMAB. [Suspect]
     Active Substance: RITUXIMAB
     Indication: B-CELL PROLYMPHOCYTIC LEUKAEMIA
     Dosage: GIVEN 2-WEEKLY (CYCLE 1-2) AND THEN 4-WEEKLY (CYCLES 3- 6), EACH CYCLE OF 28 DAYS
     Route: 042
  4. IDELALISIB [Suspect]
     Active Substance: IDELALISIB
     Dosage: FROM 4TH CYCLE ONWARDS DOSE INCREASED TO 150 MG
     Route: 048
  5. IDELALISIB [Suspect]
     Active Substance: IDELALISIB
     Route: 048
  6. IDELALISIB [Suspect]
     Active Substance: IDELALISIB
     Indication: B-CELL PROLYMPHOCYTIC LEUKAEMIA
     Route: 048

REACTIONS (1)
  - Alanine aminotransferase increased [Recovered/Resolved]
